FAERS Safety Report 8270982-9 (Version None)
Quarter: 2012Q2

REPORT INFORMATION
  Report Type: 
  Country: None (occurrence: None)
  Receive Date: 20120410
  Receipt Date: 20120328
  Transmission Date: 20120825
  Serious: Yes (Hospitalization)
  Sender: FDA-Public Use
  Company Number: US-ELI_LILLY_AND_COMPANY-US201203007041

PATIENT
  Age: 46 Year
  Sex: Female

DRUGS (3)
  1. ZYPREXA [Suspect]
     Indication: SCHIZOPHRENIA
     Dosage: 15 MG, UNK
     Route: 065
  2. ZYPREXA [Suspect]
     Dosage: 5 MG, BID
  3. ZYPREXA [Suspect]
     Dosage: 10 MG, QD

REACTIONS (3)
  - DRUG INEFFECTIVE [None]
  - ABNORMAL BEHAVIOUR [None]
  - SCHIZOPHRENIFORM DISORDER [None]
